FAERS Safety Report 6659091-X (Version None)
Quarter: 2010Q1

REPORT INFORMATION
  Report Type: 
  Country: None (occurrence: None)
  Receive Date: 20100330
  Receipt Date: 20100318
  Transmission Date: 20100710
  Serious: Yes (Life-Threatening, Other)
  Sender: FDA-Public Use
  Company Number: FR-PFIZER INC-2009307556

PATIENT
  Age: 53 Year
  Sex: Male
  Weight: 97 kg

DRUGS (2)
  1. CHAMPIX [Suspect]
     Indication: SMOKING CESSATION THERAPY
     Dosage: UNK
     Dates: start: 20090717, end: 20091018
  2. CHONDROSULF [Concomitant]
     Indication: HERNIA
     Dosage: UNK
     Route: 048

REACTIONS (7)
  - ABNORMAL BEHAVIOUR [None]
  - AGGRESSION [None]
  - ALCOHOL ABUSE [None]
  - DEPRESSION [None]
  - MEMORY IMPAIRMENT [None]
  - WEIGHT INCREASED [None]
  - WITHDRAWAL SYNDROME [None]
